FAERS Safety Report 6764636-5 (Version None)
Quarter: 2010Q2

REPORT INFORMATION
  Report Type: 
  Country: None (occurrence: None)
  Receive Date: 20100610
  Receipt Date: 20100608
  Transmission Date: 20101027
  Serious: Yes (Life-Threatening, Hospitalization)
  Sender: FDA-Public Use
  Company Number: GXKR2009DE06265

PATIENT
  Age: 73 Year
  Sex: Female
  Weight: 74.8 kg

DRUGS (12)
  1. HCT 1A PHARMA (NGX) [Interacting]
     Indication: HYPERTENSION
     Dosage: 25 MG, QD
     Route: 048
     Dates: start: 20070101, end: 20081107
  2. RAMIPRIL 1A PHARMA PLUS (NGX) [Interacting]
     Indication: HYPERTENSION
     Dosage: 1 DF, QD
     Route: 048
     Dates: start: 20070101, end: 20081107
  3. ASPIRIN [Interacting]
     Indication: ISCHAEMIC HEART DISEASE PROPHYLAXIS
     Dosage: 100 MG, QD
     Route: 048
     Dates: start: 20020101
  4. TACHYSTIN [Suspect]
     Indication: HYPOPARATHYROIDISM
     Dosage: UNK
     Route: 048
     Dates: start: 19980101, end: 20081107
  5. METO ABZ COMP. [Interacting]
     Indication: HYPERTENSION
     Dosage: 50 MG, BID
     Route: 048
     Dates: start: 20020101
  6. SPIRONOLACTONE [Interacting]
     Indication: CARDIAC FAILURE
     Dosage: 25 MG, QD
     Route: 048
     Dates: start: 20080501, end: 20081107
  7. TOREM [Interacting]
     Indication: CARDIAC FAILURE
     Dosage: 10 MG, QD
     Route: 048
     Dates: start: 20080501, end: 20081107
  8. ALLOPURINOL ^1A FARMA^ [Concomitant]
     Route: 048
  9. AVANDAMET [Concomitant]
     Route: 048
  10. L-THYROXIN ^HENNING BERLIN^ [Concomitant]
     Route: 048
  11. RANIBETA [Concomitant]
     Indication: PROPHYLAXIS AGAINST GASTROINTESTINAL ULCER
     Route: 048
  12. SIMVASTATIN [Concomitant]
     Route: 048

REACTIONS (2)
  - HYPERCALCAEMIA [None]
  - RENAL FAILURE ACUTE [None]
